FAERS Safety Report 21080367 (Version 2)
Quarter: 2022Q3

REPORT INFORMATION
  Report Type: Spontaneous
  Country: JP (occurrence: JP)
  Receive Date: 20220714
  Receipt Date: 20220817
  Transmission Date: 20221027
  Serious: Yes (Other)
  Sender: FDA-Public Use
  Company Number: JP-INSMED-2022-01520-JPAA

PATIENT
  Age: 72 Year
  Sex: Female

DRUGS (1)
  1. ARIKAYCE [Suspect]
     Active Substance: AMIKACIN
     Indication: Mycobacterium avium complex infection
     Dosage: 590 MILLIGRAM
     Route: 055

REACTIONS (5)
  - Pulmonary cavitation [Unknown]
  - Sputum increased [Unknown]
  - Pyrexia [Unknown]
  - Malaise [Unknown]
  - Dysphonia [Unknown]
